FAERS Safety Report 16218952 (Version 2)
Quarter: 2019Q2

REPORT INFORMATION
  Report Type: Spontaneous
  Country: US (occurrence: US)
  Receive Date: 20190419
  Receipt Date: 20190430
  Transmission Date: 20190711
  Serious: No
  Sender: FDA-Public Use
  Company Number: US-PFIZER INC-2019168045

PATIENT
  Sex: Female

DRUGS (1)
  1. TOVIAZ [Suspect]
     Active Substance: FESOTERODINE FUMARATE
     Dosage: UNK (8 MG, WAS SPLITTING THEM IN HALF BECAUSE SHE WANTED TO TAKE 4 MG)

REACTIONS (2)
  - Dysuria [Unknown]
  - Wrong technique in product usage process [Unknown]
